FAERS Safety Report 5244677-X (Version None)
Quarter: 2007Q1

REPORT INFORMATION
  Report Type: 
  Country: None (occurrence: None)
  Receive Date: 20061201
  Receipt Date: 20060813
  Transmission Date: 20070707
  Serious: No
  Sender: FDA-Public Use
  Company Number: 2006PV019529

PATIENT
  Age: 58 Year
  Sex: Female

DRUGS (3)
  1. BYETTA [Suspect]
     Indication: DIABETES MELLITUS NON-INSULIN-DEPENDENT
     Dosage: SEE IMAGE
     Route: 058
     Dates: start: 20060101, end: 20060101
  2. BYETTA [Suspect]
     Indication: DIABETES MELLITUS NON-INSULIN-DEPENDENT
     Dosage: SEE IMAGE
     Route: 058
     Dates: start: 20060101
  3. GLUCOPHAGE [Concomitant]

REACTIONS (8)
  - CONTRAST MEDIA REACTION [None]
  - HEADACHE [None]
  - INJECTION SITE BRUISING [None]
  - INJECTION SITE NODULE [None]
  - INJECTION SITE PAIN [None]
  - MEDICATION ERROR [None]
  - RENAL ARTERY STENOSIS [None]
  - RENAL IMPAIRMENT [None]
